FAERS Safety Report 4659054-X (Version None)
Quarter: 2005Q2

REPORT INFORMATION
  Report Type: 
  Country: None (occurrence: None)
  Receive Date: 20050510
  Receipt Date: 20050510
  Transmission Date: 20051028
  Serious: Yes (Other)
  Sender: FDA-Public Use
  Company Number: None

PATIENT
  Age: 18 Year
  Sex: Female
  Weight: 61.2356 kg

DRUGS (2)
  1. DILANTIN [Suspect]
     Dosage: 100 MG TID
  2. TEGRETOL [Suspect]
     Dosage: 100 MG 1 1/2 TID

REACTIONS (1)
  - CONVULSION [None]
